FAERS Safety Report 7201407-X (Version None)
Quarter: 2010Q4

REPORT INFORMATION
  Report Type: 
  Country: None (occurrence: None)
  Receive Date: 20101216
  Receipt Date: 20101213
  Transmission Date: 20110411
  Serious: Yes (Life-Threatening, Hospitalization)
  Sender: FDA-Public Use
  Company Number: 2010SP064296

PATIENT
  Sex: Female

DRUGS (6)
  1. ROCURONIUM BROMIDE [Suspect]
     Indication: INDUCTION OF ANAESTHESIA
  2. FENTANYL [Suspect]
     Indication: INDUCTION OF ANAESTHESIA
     Dosage: 100 MCG;QD
  3. MIDAZOLAM (OTHER MFR) (MIDAZOLAM /00634101/) [Suspect]
     Indication: INDUCTION OF ANAESTHESIA
  4. PROPOFOL [Suspect]
     Indication: INDUCTION OF ANAESTHESIA
  5. CEPHALOTHIN SODIUM [Concomitant]
  6. RANITIDINE [Concomitant]

REACTIONS (3)
  - CARDIAC ARREST [None]
  - HYPERTENSION [None]
  - TACHYCARDIA [None]
